FAERS Safety Report 9256298 (Version 1)
Quarter: 2013Q2

REPORT INFORMATION
  Report Type: Spontaneous
  Country: US (occurrence: US)
  Receive Date: 20130425
  Receipt Date: 20130425
  Transmission Date: 20140414
  Serious: No
  Sender: FDA-Public Use
  Company Number: US-AMGEN-USASP2012072784

PATIENT
  Age: 72 Year
  Sex: Female

DRUGS (3)
  1. NEULASTA [Suspect]
     Indication: NEUTROPHIL COUNT DECREASED
     Dosage: UNK
  2. CARBOPLATIN [Concomitant]
     Dosage: UNK
  3. PACLITAXEL [Concomitant]
     Dosage: UNK

REACTIONS (1)
  - Swollen tongue [Unknown]
